FAERS Safety Report 6321713-0 (Version None)
Quarter: 2009Q3

REPORT INFORMATION
  Report Type: 
  Country: None (occurrence: None)
  Receive Date: 20090821
  Receipt Date: 20090821
  Transmission Date: 20100115
  Serious: Yes (Disabling)
  Sender: FDA-Public Use
  Company Number: None

PATIENT
  Sex: Female
  Weight: 58.514 kg

DRUGS (1)
  1. ABILIFY [Suspect]
     Indication: DRUG PRESCRIBING ERROR
     Dosage: 20 MG ONCE A DAY
     Dates: start: 20051128

REACTIONS (2)
  - IMPAIRED DRIVING ABILITY [None]
  - TARDIVE DYSKINESIA [None]
